FAERS Safety Report 4500554-0 (Version None)
Quarter: 2004Q4

REPORT INFORMATION
  Report Type: 
  Country: None (occurrence: None)
  Receive Date: 20041110
  Receipt Date: 20041026
  Transmission Date: 20050328
  Serious: Yes (Hospitalization, Other)
  Sender: FDA-Public Use
  Company Number: 204387

PATIENT
  Sex: Female

DRUGS (1)
  1. AVONEX [Suspect]
     Indication: MULTIPLE SCLEROSIS
     Dosage: 30 MCG QW IM
     Route: 030

REACTIONS (4)
  - CONVULSION [None]
  - DISTURBANCE IN ATTENTION [None]
  - LOSS OF CONSCIOUSNESS [None]
  - SPEECH DISORDER [None]
